FAERS Safety Report 17993967 (Version 2)
Quarter: 2021Q4

REPORT INFORMATION
  Report Type: Other
  Country: FR (occurrence: None)
  Receive Date: 20200708
  Receipt Date: 20211220
  Transmission Date: 20220303
  Serious: Yes (Other)
  Sender: FDA-Public Use
  Company Number: FR-ROCHE-2633877

PATIENT

DRUGS (6)
  1. VEMURAFENIB [Suspect]
     Active Substance: VEMURAFENIB
     Indication: Malignant melanoma
     Route: 065
  2. COBIMETINIB [Suspect]
     Active Substance: COBIMETINIB
     Indication: Malignant melanoma
     Route: 065
  3. DABRAFENIB [Suspect]
     Active Substance: DABRAFENIB
     Indication: Malignant melanoma
     Route: 065
  4. TRAMETINIB [Suspect]
     Active Substance: TRAMETINIB
     Indication: Malignant melanoma
     Route: 065
  5. NIVOLUMAB [Suspect]
     Active Substance: NIVOLUMAB
     Indication: Malignant melanoma
     Route: 065
  6. PEMBROLIZUMAB [Suspect]
     Active Substance: PEMBROLIZUMAB
     Indication: Malignant melanoma
     Route: 065

REACTIONS (53)
  - Diarrhoea [Unknown]
  - Dermatitis acneiform [Unknown]
  - Aspartate aminotransferase increased [Unknown]
  - Muscular weakness [Unknown]
  - Blood creatine phosphokinase increased [Unknown]
  - Rash maculo-papular [Unknown]
  - Hyponatraemia [Unknown]
  - Dermatitis bullous [Unknown]
  - Squamous cell carcinoma [Unknown]
  - Rhabdomyolysis [Unknown]
  - Hypokalaemia [Unknown]
  - Pyrexia [Unknown]
  - Fatigue [Unknown]
  - Chills [Unknown]
  - Hypothyroidism [Unknown]
  - Dry skin [Unknown]
  - Eosinophilia [Unknown]
  - Myalgia [Unknown]
  - Pruritus [Unknown]
  - Skin infection [Unknown]
  - Palmar-plantar erythrodysaesthesia syndrome [Unknown]
  - Rash pustular [Unknown]
  - Skin hypopigmentation [Unknown]
  - Skin ulcer [Unknown]
  - Localised oedema [Unknown]
  - Influenza like illness [Unknown]
  - Oral pain [Unknown]
  - Pain [Unknown]
  - Confusional state [Unknown]
  - Decreased appetite [Unknown]
  - Granuloma [Unknown]
  - Alanine aminotransferase increased [Unknown]
  - Blood alkaline phosphatase increased [Unknown]
  - Gamma-glutamyltransferase increased [Unknown]
  - Nausea [Unknown]
  - Vomiting [Unknown]
  - Colitis [Unknown]
  - Myalgia [Unknown]
  - Myositis [Unknown]
  - Arthralgia [Unknown]
  - Pneumonitis [Unknown]
  - Dyspnoea [Unknown]
  - Computerised tomogram thorax abnormal [Unknown]
  - Sinus tachycardia [Unknown]
  - Headache [Unknown]
  - Meningism [Unknown]
  - Tinnitus [Unknown]
  - Vertigo [Unknown]
  - Ocular hyperaemia [Unknown]
  - Hyperthyroidism [Unknown]
  - Eosinophilia [Unknown]
  - Blood creatinine increased [Unknown]
  - Neutrophil count decreased [Unknown]
